FAERS Safety Report 4476748-X (Version None)
Quarter: 2004Q4

REPORT INFORMATION
  Report Type: 
  Country: None (occurrence: None)
  Receive Date: 20041015
  Receipt Date: 20041015
  Transmission Date: 20050328
  Serious: Yes (Life-Threatening)
  Sender: FDA-Public Use
  Company Number: None

PATIENT
  Age: 62 Year
  Sex: Male
  Weight: 101 kg

DRUGS (10)
  1. RITUXIMAB   375 MG/M2   GENENTECH [Suspect]
     Indication: GRAFT VERSUS HOST DISEASE
     Dosage: 375 MG/M2   ONCE WEEKLY X4   INTRAVENOU
     Route: 042
     Dates: start: 20040721, end: 20040811
  2. ATARAX [Concomitant]
  3. BETAMETHASONE DOPROPRIONATE [Concomitant]
  4. ELIDEL [Concomitant]
  5. FLUCONAZOLE [Concomitant]
  6. HYDROCORTISONE TOPICAL [Concomitant]
  7. MEPRON [Concomitant]
  8. NEXIUM [Concomitant]
  9. OXYCODONE [Concomitant]
  10. PREDNISONE [Concomitant]

REACTIONS (5)
  - ARTHRALGIA [None]
  - BLAST CELL CRISIS [None]
  - BONE LESION [None]
  - CHRONIC MYELOID LEUKAEMIA [None]
  - X-RAY LIMB ABNORMAL [None]
